FAERS Safety Report 8840978 (Version 1)
Quarter: 2012Q4

REPORT INFORMATION
  Report Type: 
  Country: GB (occurrence: GB)
  Receive Date: 20121015
  Receipt Date: 20121015
  Transmission Date: 20130627
  Serious: Yes (Other)
  Sender: FDA-Public Use
  Company Number: GB-UCBSA-068581

PATIENT
  Age: 70 Year
  Sex: Female

DRUGS (1)
  1. NEUPRO [Suspect]
     Dosage: 8 MG + 2 MG

REACTIONS (3)
  - Psychotic disorder [Unknown]
  - Medication error [Unknown]
  - Intentional overdose [Unknown]
